FAERS Safety Report 12981394 (Version 1)
Quarter: 2016Q4

REPORT INFORMATION
  Report Type: Report from Study
  Country: US (occurrence: US)
  Receive Date: 20161129
  Receipt Date: 20161129
  Transmission Date: 20170207
  Serious: Yes (Other)
  Sender: FDA-Public Use
  Company Number: US-CLINIGEN GROUP PLC/ CLINIGEN HEALTHCARE LTD-E2B_00001248

PATIENT
  Age: 41 Year

DRUGS (6)
  1. ETHYOL [Suspect]
     Active Substance: AMIFOSTINE
     Indication: PROPHYLACTIC CHEMOTHERAPY
     Route: 042
  2. RANITIDINE. [Concomitant]
     Active Substance: RANITIDINE
  3. ONDASENTRON [Concomitant]
  4. DIPHENHYDRAMINE. [Concomitant]
     Active Substance: DIPHENHYDRAMINE
  5. DEXAMETHASONE. [Concomitant]
     Active Substance: DEXAMETHASONE
  6. LORAZEPAM. [Concomitant]
     Active Substance: LORAZEPAM

REACTIONS (5)
  - Diarrhoea [Recovered/Resolved]
  - Nausea [Recovered/Resolved]
  - Vomiting [Recovered/Resolved]
  - Atrial fibrillation [Recovered/Resolved]
  - Mucosal inflammation [Recovered/Resolved]
